FAERS Safety Report 4375989-X (Version None)
Quarter: 2004Q1

REPORT INFORMATION
  Report Type: 
  Country: None (occurrence: None)
  Receive Date: 20040309
  Receipt Date: 20040309
  Transmission Date: 20041129
  Serious: Yes (Death)
  Sender: FDA-Public Use
  Company Number: None

PATIENT
  Age: 14 Year
  Sex: Female
  Weight: 79.8331 kg

DRUGS (3)
  1. ADDERALL XR 20 [Suspect]
     Indication: ATTENTION DEFICIT/HYPERACTIVITY DISORDER
     Dosage: 20 MG Q DAY ORAL
     Route: 048
     Dates: start: 20040515, end: 20040531
  2. LEXAPRO [Suspect]
     Indication: AFFECTIVE DISORDER
     Dosage: 10 MG Q DAY ORAL
     Route: 048
     Dates: start: 20040423, end: 20040531
  3. LEXAPRO [Suspect]
     Indication: ANXIETY
     Dosage: 10 MG Q DAY ORAL
     Route: 048
     Dates: start: 20040423, end: 20040531

REACTIONS (2)
  - COMPLETED SUICIDE [None]
  - INJURY ASPHYXIATION [None]
